FAERS Safety Report 4863374-3 (Version None)
Quarter: 2005Q4

REPORT INFORMATION
  Report Type: 
  Country: None (occurrence: None)
  Receive Date: 20051222
  Receipt Date: 20041103
  Transmission Date: 20060501
  Serious: No
  Sender: FDA-Public Use
  Company Number: US-GLAXOSMITHKLINE-A0532553A

PATIENT
  Sex: Female

DRUGS (3)
  1. FLONASE [Suspect]
     Indication: RHINITIS
     Route: 045
     Dates: start: 20030101
  2. BLOOD PRESSURE MEDICATION [Concomitant]
  3. THYROID TAB [Concomitant]

REACTIONS (1)
  - NASAL DRYNESS [None]
